FAERS Safety Report 12077865 (Version 1)
Quarter: 2016Q1

REPORT INFORMATION
  Report Type: Spontaneous
  Country: US (occurrence: US)
  Receive Date: 20160215
  Receipt Date: 20160215
  Transmission Date: 20160526
  Serious: Yes (Hospitalization)
  Sender: FDA-Public Use
  Company Number: US-ELI_LILLY_AND_COMPANY-US201602003469

PATIENT
  Age: 59 Year
  Sex: Male

DRUGS (7)
  1. PROTONIX                           /00661201/ [Concomitant]
     Active Substance: OMEPRAZOLE
  2. TIZANIDINE. [Concomitant]
     Active Substance: TIZANIDINE
  3. LYRICA [Concomitant]
     Active Substance: PREGABALIN
  4. METFORMIN [Concomitant]
     Active Substance: METFORMIN HYDROCHLORIDE
  5. ASPIRIN                            /00002701/ [Concomitant]
     Active Substance: ASPIRIN
  6. EFFIENT [Suspect]
     Active Substance: PRASUGREL HYDROCHLORIDE
     Indication: STENT PLACEMENT
     Dosage: 10 MG, QD
     Route: 048
     Dates: start: 201502
  7. TOPROL XL [Concomitant]
     Active Substance: METOPROLOL SUCCINATE

REACTIONS (2)
  - Epistaxis [Not Recovered/Not Resolved]
  - Device occlusion [Recovered/Resolved]

NARRATIVE: CASE EVENT DATE: 201506
